FAERS Safety Report 6939064-X (Version None)
Quarter: 2010Q3

REPORT INFORMATION
  Report Type: 
  Country: None (occurrence: None)
  Receive Date: 20100824
  Receipt Date: 20100820
  Transmission Date: 20110219
  Serious: Yes (Other)
  Sender: FDA-Public Use
  Company Number: US-MERCK-1007USA04099

PATIENT
  Age: 11 Year
  Sex: Male

DRUGS (3)
  1. SINGULAIR [Suspect]
     Indication: ASTHMA
     Route: 048
  2. SINGULAIR [Suspect]
     Indication: SEASONAL ALLERGY
     Route: 048
  3. BUDESONIDE [Concomitant]
     Route: 065

REACTIONS (3)
  - AFFECTIVE DISORDER [None]
  - DEPRESSION [None]
  - SUICIDAL IDEATION [None]
